FAERS Safety Report 11692006 (Version 2)
Quarter: 2015Q4

REPORT INFORMATION
  Report Type: Spontaneous
  Country: IT (occurrence: IT)
  Receive Date: 20151103
  Receipt Date: 20151110
  Transmission Date: 20160304
  Serious: Yes (Life-Threatening)
  Sender: FDA-Public Use
  Company Number: IT-ROCHE-1653660

PATIENT
  Age: 74 Year
  Sex: Female
  Weight: 60 kg

DRUGS (3)
  1. FLUOROURACIL. [Concomitant]
     Active Substance: FLUOROURACIL
     Dosage: 50 MG/ML-1 X 100 ML GLASS VIAL
     Route: 042
     Dates: start: 20151006, end: 20151007
  2. AVASTIN [Suspect]
     Active Substance: BEVACIZUMAB
     Indication: COLON CANCER
     Dosage: 1 X 100 MG VIAL CONCENTRATE FOR SOLUTION FOR INFUSION
     Route: 042
     Dates: start: 20150922, end: 20151006
  3. FLUOROURACIL. [Concomitant]
     Active Substance: FLUOROURACIL
     Indication: COLON CANCER
     Dosage: 50 MG/ML -1 X 20 ML GLASS VIAL
     Route: 042
     Dates: start: 20151006, end: 20151007

REACTIONS (2)
  - Tumour perforation [Recovering/Resolving]
  - Neutropenia [Recovering/Resolving]

NARRATIVE: CASE EVENT DATE: 20151011
